FAERS Safety Report 25031342 (Version 4)
Quarter: 2025Q3

REPORT INFORMATION
  Report Type: Spontaneous
  Country: EU (occurrence: EU)
  Receive Date: 20250303
  Receipt Date: 20250922
  Transmission Date: 20251021
  Serious: Yes (Hospitalization, Other)
  Sender: MYLAN
  Company Number: EU-MYLANLABS-2025M1015325

PATIENT
  Sex: Female

DRUGS (2)
  1. CLOZARIL [Suspect]
     Active Substance: CLOZAPINE
     Indication: Schizophrenia
     Dates: start: 20010302, end: 20250219
  2. CLOZARIL [Suspect]
     Active Substance: CLOZAPINE

REACTIONS (6)
  - Malaise [Unknown]
  - Electrocardiogram QT prolonged [Unknown]
  - Schizophrenia [Unknown]
  - Neutrophil toxic granulation present [Unknown]
  - Full blood count abnormal [Unknown]
  - Lymphocytosis [Unknown]
